FAERS Safety Report 6403907-9 (Version None)
Quarter: 2009Q4

REPORT INFORMATION
  Report Type: 
  Country: None (occurrence: None)
  Receive Date: 20091015
  Receipt Date: 20091015
  Transmission Date: 20100525
  Serious: Yes (Other)
  Sender: FDA-Public Use
  Company Number: None

PATIENT
  Sex: Female
  Weight: 75 kg

DRUGS (1)
  1. BURT'S BEES REPAIR SERUM BURT'S BEES, INC. [Suspect]
     Indication: THERAPEUTIC PROCEDURE
     Dosage: 2 DROPLETS EACH EYELID 1 TIME TOPICAL
     Route: 061
     Dates: start: 20090924

REACTIONS (6)
  - EYE PRURITUS [None]
  - HEADACHE [None]
  - IRRITABILITY [None]
  - OCULAR HYPERAEMIA [None]
  - PRODUCT QUALITY ISSUE [None]
  - URTICARIA [None]
